FAERS Safety Report 5288960-0 (Version None)
Quarter: 2007Q2

REPORT INFORMATION
  Report Type: 
  Country: None (occurrence: None)
  Receive Date: 20070405
  Receipt Date: 20070326
  Transmission Date: 20071010
  Serious: Yes (Other)
  Sender: FDA-Public Use
  Company Number: JP-PFIZER INC-2007012642

PATIENT
  Age: 88 Year
  Sex: Male
  Weight: 44 kg

DRUGS (1)
  1. ZITHROMAC [Suspect]
     Indication: PERIODONTAL DISEASE
     Dosage: DAILY DOSE:500MG
     Route: 048
     Dates: start: 20070208, end: 20070208

REACTIONS (7)
  - CHILLS [None]
  - DEPRESSED LEVEL OF CONSCIOUSNESS [None]
  - DIARRHOEA [None]
  - INCONTINENCE [None]
  - NAUSEA [None]
  - PYREXIA [None]
  - VOMITING [None]
